FAERS Safety Report 11883360 (Version 3)
Quarter: 2016Q1

REPORT INFORMATION
  Report Type: Spontaneous
  Country: US (occurrence: US)
  Receive Date: 20151231
  Receipt Date: 20160322
  Transmission Date: 20160526
  Serious: No
  Sender: FDA-Public Use
  Company Number: US-PFIZER INC-2015426628

PATIENT
  Age: 79 Year
  Sex: Male

DRUGS (1)
  1. TRIAZOLAM. [Suspect]
     Active Substance: TRIAZOLAM
     Indication: INSOMNIA
     Dosage: 1/2 PILL BEFORE BED AND THEN 3 HOURS LATER; TAKES THE OTHER 1/2 PILL.
     Dates: start: 1987

REACTIONS (4)
  - Drug ineffective [Not Recovered/Not Resolved]
  - Poor quality drug administered [Unknown]
  - Incorrect product storage [Unknown]
  - Intentional product use issue [Not Recovered/Not Resolved]
